FAERS Safety Report 13387300 (Version 3)
Quarter: 2017Q2

REPORT INFORMATION
  Report Type: Report from Study
  Country: US (occurrence: US)
  Receive Date: 20170330
  Receipt Date: 20170426
  Transmission Date: 20170830
  Serious: Yes (Hospitalization, Other)
  Sender: FDA-Public Use
  Company Number: US-PFIZER INC-2016598200

PATIENT
  Age: 5 Year
  Sex: Female
  Weight: 16 kg

DRUGS (83)
  1. CYTARABINE. [Suspect]
     Active Substance: CYTARABINE
     Indication: CHEMOTHERAPY
     Dosage: 30MG CYTARABINE IN 6 ML NS, ONCE
     Route: 037
     Dates: start: 20170110, end: 20170110
  2. SEPTRA [Suspect]
     Active Substance: SULFAMETHOXAZOLE\TRIMETHOPRIM
     Indication: PNEUMOCYSTIS JIROVECII PNEUMONIA
     Dosage: 40 MG, SUSPENSION 40MG/5ML, TWICE A DAY ON FRIDAY, SAT, SUN,
     Route: 048
     Dates: start: 20161223, end: 20161225
  3. MERCAPTOPURINE. [Suspect]
     Active Substance: MERCAPTOPURINE
     Dosage: 50 MG, AT BEDTIME
     Route: 048
     Dates: start: 20161219, end: 20161220
  4. D5 [Suspect]
     Active Substance: DEXTROSE
     Indication: FLUID REPLACEMENT
     Dosage: 1000 ML, CONTINUOUS
     Route: 042
     Dates: start: 20170208, end: 20170220
  5. ONDANSETRON [Concomitant]
     Active Substance: ONDANSETRON
     Dosage: 2MG/ML INJECTABLE
  6. ACETAMINOPHEN. [Concomitant]
     Active Substance: ACETAMINOPHEN
     Dosage: UNK
  7. POTASSIUM IODIDE. [Concomitant]
     Active Substance: POTASSIUM IODIDE
     Dosage: UNK
  8. FAMOTIDINE. [Concomitant]
     Active Substance: FAMOTIDINE
     Dosage: UNK
  9. HYDROGEN PEROXIDE. [Concomitant]
     Active Substance: HYDROGEN PEROXIDE
     Dosage: UNK
  10. MEROPENEM. [Concomitant]
     Active Substance: MEROPENEM
     Dosage: UNK
  11. PHENYLEPHRINE [Concomitant]
     Active Substance: PHENYLEPHRINE\PHENYLEPHRINE HYDROCHLORIDE
     Dosage: UNK, OPHTHALMIC SOLUTION
  12. PROPARACAINE /00143101/ [Concomitant]
     Dosage: UNK, OPHTHALMIC SOLUTION
  13. TACROLIMUS. [Concomitant]
     Active Substance: TACROLIMUS
     Dosage: 0.31 MG IN NS
  14. MERCAPTOPURINE. [Suspect]
     Active Substance: MERCAPTOPURINE
     Dosage: 50 MG, EVERY DAY AT BEDTIME (HOME MEDICATION)
     Route: 048
     Dates: start: 20161118, end: 20161225
  15. METHOTREXATE. [Concomitant]
     Active Substance: METHOTREXATE
     Dosage: UNK
     Route: 037
  16. HYDROCORTISONE. [Concomitant]
     Active Substance: HYDROCORTISONE
     Dosage: UNK
     Route: 037
  17. ALLOPURINOL. [Concomitant]
     Active Substance: ALLOPURINOL
     Dosage: UNK
  18. HIBICLENS [Concomitant]
     Active Substance: CHLORHEXIDINE GLUCONATE
     Dosage: UNK, TOPICAL LIQUID
     Route: 061
  19. DOCUSATE SODIUM. [Concomitant]
     Active Substance: DOCUSATE SODIUM
     Dosage: UNK
  20. NYSTATIN. [Concomitant]
     Active Substance: NYSTATIN
     Dosage: UNK
  21. EPSOM SALT [Concomitant]
     Active Substance: MAGNESIUM SULFATE
  22. INOTUZUMAB OZOGAMICIN [Suspect]
     Active Substance: INOTUZUMAB OZOGAMICIN
     Dosage: 0.33 MG, UNK
     Dates: start: 20161229, end: 20161229
  23. INOTUZUMAB OZOGAMICIN [Suspect]
     Active Substance: INOTUZUMAB OZOGAMICIN
     Dosage: 0.33 MG, ONCE
     Route: 042
     Dates: start: 20170112, end: 20170112
  24. SEPTRA [Suspect]
     Active Substance: SULFAMETHOXAZOLE\TRIMETHOPRIM
     Dosage: 33 MG, TWICE A DAY ON FRIDAYS, SATURDAYS, SUNDAYS
     Route: 048
     Dates: start: 20160202
  25. FLUDARABINE PHOSPHATE. [Suspect]
     Active Substance: FLUDARABINE PHOSPHATE
     Indication: CHEMOTHERAPY
     Dosage: 26.75 MG IN NS 50 ML, EVERY 24 HOURS
     Route: 042
     Dates: start: 20170208, end: 20170211
  26. LEVOFLOXACIN. [Suspect]
     Active Substance: LEVOFLOXACIN
     Indication: INFECTION PROPHYLAXIS
     Dosage: 152.5 MG, EVERY DAY
     Route: 048
     Dates: start: 20161203, end: 20170112
  27. DIPHENHYDRAMINE. [Concomitant]
     Active Substance: DIPHENHYDRAMINE
     Dosage: ORAL TABLET 12.5 MG
     Route: 048
  28. IOPAMIDOL [Concomitant]
     Active Substance: IOPAMIDOL
     Dosage: UNK
  29. LORAZEPAM. [Concomitant]
     Active Substance: LORAZEPAM
     Dosage: INJECTABLE 0.4 MG
  30. OXYCODONE [Concomitant]
     Active Substance: OXYCODONE
     Dosage: UNK
  31. KETOROLAC [Concomitant]
     Active Substance: KETOROLAC\KETOROLAC TROMETHAMINE
     Dosage: UNK
  32. RANITIDINE. [Concomitant]
     Active Substance: RANITIDINE
     Dosage: UNK
  33. MAGNESIUM SULFATE. [Concomitant]
     Active Substance: MAGNESIUM SULFATE
  34. INOTUZUMAB OZOGAMICIN [Suspect]
     Active Substance: INOTUZUMAB OZOGAMICIN
     Dosage: 0.33 MG, FREQUENCY: 1
     Route: 042
     Dates: start: 20170105, end: 20170105
  35. SEPTRA [Suspect]
     Active Substance: SULFAMETHOXAZOLE\TRIMETHOPRIM
     Indication: INFECTION PROPHYLAXIS
     Dosage: 33 MG, SUSPENSION 40MG/5ML, ONCE
     Route: 048
     Dates: start: 20161210, end: 20161210
  36. MERCAPTOPURINE. [Suspect]
     Active Substance: MERCAPTOPURINE
     Indication: IMMUNOSUPPRESSION
     Dosage: 50 MG, ONCE
     Route: 048
     Dates: start: 20161210, end: 20161210
  37. AMPHOTERICIN B. [Suspect]
     Active Substance: AMPHOTERICIN B
     Indication: ANTIFUNGAL PROPHYLAXIS
     Dosage: 5 MG/ML, 2X/DAY
     Route: 045
     Dates: start: 20170213, end: 20170329
  38. KEPPRA [Suspect]
     Active Substance: LEVETIRACETAM
     Dosage: 125 MG, TWICE A DAY ON
     Route: 042
     Dates: start: 20170210, end: 20170213
  39. CEFEPIME [Concomitant]
     Active Substance: CEFEPIME HYDROCHLORIDE
     Dosage: UNK
  40. LACTATED RINGERS [Concomitant]
     Active Substance: CALCIUM CHLORIDE\POTASSIUM CHLORIDE\SODIUM CHLORIDE\SODIUM LACTATE
     Dosage: UNK
  41. SIROLIMUS. [Concomitant]
     Active Substance: SIROLIMUS
  42. FLUCONAZOLE. [Suspect]
     Active Substance: FLUCONAZOLE
     Indication: INFECTION PROPHYLAXIS
     Dosage: 100 MG, (1 TAB) BY MOUTH EVERY 24 HOURS
     Route: 048
     Dates: start: 20161224, end: 20170112
  43. MERCAPTOPURINE. [Suspect]
     Active Substance: MERCAPTOPURINE
     Dosage: 50 MG, ONCE
     Route: 048
     Dates: start: 20161214, end: 20161214
  44. BUSULFAN. [Suspect]
     Active Substance: BUSULFAN
     Indication: CHEMOTHERAPY
     Dosage: 12.3 MG IN NS
  45. DEFIBROTIDE [Suspect]
     Active Substance: DEFIBROTIDE (BOVINE)
     Indication: PROPHYLAXIS
     Dosage: 100 MG DEFIBROTIDE IN D5W 10 ML, EVERY 6 HOURS
     Route: 042
     Dates: start: 20170207, end: 20170302
  46. LIDOCAINE AND PRILOCAINE [Concomitant]
     Active Substance: LIDOCAINE\PRILOCAINE
     Dosage: UNK
  47. POLYETHYLENE GLYCOL 3350. [Concomitant]
     Active Substance: POLYETHYLENE GLYCOL 3350
     Dosage: ORAL POWDER
     Route: 048
  48. VORICONAZOLE. [Concomitant]
     Active Substance: VORICONAZOLE
     Dosage: UNK
  49. LORAZEPAM. [Concomitant]
     Active Substance: LORAZEPAM
     Dosage: ORAL TABLET 0.5 MG
     Route: 048
  50. LANOLIN. [Concomitant]
     Active Substance: LANOLIN
     Dosage: UNK, OINTMENT
  51. BUSULFAN. [Suspect]
     Active Substance: BUSULFAN
     Dosage: 14.7 MG BUSULFAN IN NS 27.22 ML, EVERY 8 HOURS
     Route: 042
     Dates: start: 20170209, end: 20170212
  52. THIOTEPA. [Suspect]
     Active Substance: THIOTEPA
     Indication: CHEMOTHERAPY
     Dosage: 77MG IN NS 167.5 ML, EVERY 12 HOURS
     Route: 042
     Dates: start: 20170207, end: 20170207
  53. D5 [Suspect]
     Active Substance: DEXTROSE
     Dosage: D5W-1/2 NS +KCL 20MEQ/L
  54. VANCOMYCIN [Concomitant]
     Active Substance: VANCOMYCIN
     Dosage: UNK
  55. FENTANYL. [Concomitant]
     Active Substance: FENTANYL
     Dosage: UNK
  56. CHLORHEXIDINE GLUCONATE. [Concomitant]
     Active Substance: CHLORHEXIDINE GLUCONATE
     Dosage: UNK, MOUTH RINSE
  57. URSODIOL. [Concomitant]
     Active Substance: URSODIOL
     Dosage: UNK
  58. HYDROCORTISONE SODIUM SUCCINATE [Suspect]
     Active Substance: HYDROCORTISONE SODIUM SUCCINATE
     Indication: PREMEDICATION
     Dosage: 50MG IN NS (0.9 SODIUM CHLORIDE) 50ML, ONCE
     Route: 042
     Dates: start: 20161223, end: 20161223
  59. DIPHENHYDRAMINE. [Concomitant]
     Active Substance: DIPHENHYDRAMINE
     Dosage: 15 MG, UNK
     Route: 042
  60. ESTROGENS CONJUGATED [Concomitant]
     Active Substance: ESTROGENS, CONJUGATED
     Dosage: UNK
  61. EMLA [Concomitant]
     Active Substance: LIDOCAINE\PRILOCAINE
     Dosage: UNK
  62. SODIUM CHLORIDE. [Concomitant]
     Active Substance: SODIUM CHLORIDE
     Dosage: UNK
  63. CLOTRIMAZOLE. [Concomitant]
     Active Substance: CLOTRIMAZOLE
     Dosage: UNK, TROCHE
  64. CYCLOPENTOLATE. [Concomitant]
     Active Substance: CYCLOPENTOLATE
     Dosage: UNK, OPHTHALMIC SOLUTION
  65. METHYLPREDNISOLONE SODIUM SUCCINATE. [Concomitant]
     Active Substance: METHYLPREDNISOLONE SODIUM SUCCINATE
     Dosage: UNK
  66. TROPICAMIDE. [Concomitant]
     Active Substance: TROPICAMIDE
     Dosage: UNK, OPHTHALMIC SOLUTION
  67. ACYCLOVIR /00587301/ [Concomitant]
     Active Substance: ACYCLOVIR
  68. VITAMIN E /00110501/ [Concomitant]
     Active Substance: TOCOPHEROL
  69. SALINE /00075401/ [Concomitant]
     Active Substance: SODIUM CHLORIDE
  70. INOTUZUMAB OZOGAMICIN [Suspect]
     Active Substance: INOTUZUMAB OZOGAMICIN
     Indication: ACUTE LYMPHOCYTIC LEUKAEMIA
     Dosage: 0.53 MG, SINGLE (FREQUENCY: 1)
     Route: 042
     Dates: start: 20161222, end: 20161222
  71. INOTUZUMAB OZOGAMICIN [Suspect]
     Active Substance: INOTUZUMAB OZOGAMICIN
     Dosage: 0.33 MG, ONCE
     Route: 042
     Dates: start: 20170119, end: 20170119
  72. METHYLPREDNISOLONE SODIUM SUCCINATE. [Suspect]
     Active Substance: METHYLPREDNISOLONE SODIUM SUCCINATE
     Indication: PREMEDICATION
     Dosage: 15MG IN NS (0.9 SODIUM CHLORIDE) 6ML, ONCE
     Route: 042
     Dates: start: 20161222, end: 20161222
  73. SEPTRA [Suspect]
     Active Substance: SULFAMETHOXAZOLE\TRIMETHOPRIM
     Dosage: 33 MG, TWICE A DAY ON FRIDAYS, SATURDAYS, SUNDAYS
     Route: 048
     Dates: start: 20160210, end: 20170212
  74. KEPPRA [Suspect]
     Active Substance: LEVETIRACETAM
     Indication: SEIZURE
     Dosage: ORAL TABLET 125 MG
     Route: 048
  75. OXYMETAZOLINE [Concomitant]
     Active Substance: OXYMETAZOLINE
     Dosage: UNK
  76. ONDANSETRON [Concomitant]
     Active Substance: ONDANSETRON
     Dosage: 2.3MG ORAL SOLUTION
     Route: 048
  77. MICAFUNGIN [Concomitant]
     Active Substance: MICAFUNGIN
     Dosage: UNK
  78. PROPOFOL. [Concomitant]
     Active Substance: PROPOFOL
     Dosage: UNK
  79. FLUORIDE [Concomitant]
     Active Substance: SODIUM FLUORIDE
     Dosage: UNK
  80. POTASSIUM PHOSPHATE /00493501/ [Concomitant]
     Active Substance: POTASSIUM PHOSPHATE, DIBASIC
     Dosage: UNK, IN D5W
  81. POLYETHYLENE GLYCOL 3350 AND ELECTROLYTES [Concomitant]
     Active Substance: POLYETHYLENE GLYCOL 3350\POLYETHYLENE GLYCOL 3350\POTASSIUM CHLORIDE\SODIUM BICARBONATE\SODIUM CHLORIDE\SODIUM SULFATE ANHYDROUS\POTASSIUM CHLORIDE\SODIUM BICARBONATE\SODIUM CHLORIDE\SODIUM SULFATE ANHYDROUS
     Dosage: UNK, ORAL POWDER
     Route: 048
  82. CETIRIZINE [Concomitant]
     Active Substance: CETIRIZINE HYDROCHLORIDE
  83. POTASSIUM CHLORIDE. [Concomitant]
     Active Substance: POTASSIUM CHLORIDE

REACTIONS (22)
  - Febrile neutropenia [Recovered/Resolved]
  - White blood cell count decreased [Recovered/Resolved]
  - Hypophosphataemia [Recovered/Resolved]
  - Anaemia [Recovered/Resolved]
  - Lymphocyte count decreased [Recovered/Resolved]
  - Neutrophil count decreased [Recovered/Resolved]
  - Pyrexia [Recovered/Resolved]
  - Hyperglycaemia [Recovered/Resolved]
  - Cough [Recovered/Resolved]
  - Blood bilirubin increased [Recovered/Resolved]
  - Platelet count decreased [Recovered/Resolved]
  - Aspartate aminotransferase increased [Recovered/Resolved]
  - Hypoalbuminaemia [Recovered/Resolved]
  - Hypotension [Recovered/Resolved]
  - Diarrhoea [Recovered/Resolved]
  - Hyperkalaemia [Recovered/Resolved]
  - Gamma-glutamyltransferase increased [Not Recovered/Not Resolved]
  - Rhinovirus infection [Recovered/Resolved]
  - Hypomagnesaemia [Recovered/Resolved]
  - Alanine aminotransferase increased [Recovered/Resolved]
  - Hypocalcaemia [Recovered/Resolved]
  - Hypokalaemia [Recovered/Resolved]

NARRATIVE: CASE EVENT DATE: 20161222
